FAERS Safety Report 7385400-2 (Version None)
Quarter: 2011Q1

REPORT INFORMATION
  Report Type: 
  Country: None (occurrence: None)
  Receive Date: 20110330
  Receipt Date: 20101111
  Transmission Date: 20110831
  Serious: Yes (Hospitalization)
  Sender: FDA-Public Use
  Company Number: US-AMGEN-USACT2010000815

PATIENT
  Age: 64 Year
  Sex: Female
  Weight: 6.7 kg

DRUGS (16)
  1. RENVELA [Concomitant]
     Dosage: 800 MG, TID
  2. PRILOSEC [Concomitant]
     Dosage: 20 MG, QD
  3. MELATONIN [Concomitant]
     Dosage: 3 MG, QD
  4. REMERON [Concomitant]
     Dosage: 30 MG, QD
  5. COUMADIN [Concomitant]
     Dosage: 5 MG, QD
  6. ZEMPLAR [Concomitant]
     Dosage: 4 A?G, 3 TIMES/WK
     Route: 042
     Dates: start: 20100522, end: 20101009
  7. LORTAB [Concomitant]
     Dosage: UNK UNK, PRN
  8. SYNTHROID [Concomitant]
     Dosage: UNK UNK, QD
  9. MIDODRINE HYDROCHLORIDE [Concomitant]
     Dosage: 5 MG, TID
  10. AMBIEN [Concomitant]
     Dosage: 5 MG, QD
  11. PHOSLO [Concomitant]
     Dosage: 667 MG, QID
  12. CINACALCET HYDROCHLORIDE [Suspect]
     Indication: HYPERPARATHYROIDISM SECONDARY
     Dosage: UNK
  13. AMIODARONE HCL [Concomitant]
     Dosage: 200 MG, QD
  14. COLACE [Concomitant]
     Dosage: 100 MG, PRN
  15. MIRALAX [Concomitant]
     Dosage: 17 G, PRN
  16. ZOCOR [Concomitant]
     Dosage: 40 MG, QD

REACTIONS (2)
  - ARTERIOVENOUS FISTULA SITE COMPLICATION [None]
  - NON-CARDIOGENIC PULMONARY OEDEMA [None]
